FAERS Safety Report 25379415 (Version 1)
Quarter: 2025Q2

REPORT INFORMATION
  Report Type: Spontaneous
  Country: CN (occurrence: CN)
  Receive Date: 20250530
  Receipt Date: 20250530
  Transmission Date: 20250717
  Serious: Yes (Life-Threatening, Hospitalization, Other)
  Sender: RANBAXY
  Company Number: CN-SUN PHARMACEUTICAL INDUSTRIES LTD-2025R1-509182

PATIENT
  Age: 56 Year
  Sex: Female

DRUGS (9)
  1. OXALIPLATIN [Suspect]
     Active Substance: OXALIPLATIN
     Indication: Hydronephrosis
     Route: 065
  2. OXALIPLATIN [Suspect]
     Active Substance: OXALIPLATIN
     Indication: Gastric cancer stage IV
  3. CAMRELIZUMAB [Suspect]
     Active Substance: CAMRELIZUMAB
     Indication: Hydronephrosis
     Route: 042
  4. CAMRELIZUMAB [Suspect]
     Active Substance: CAMRELIZUMAB
     Indication: Gastric cancer stage IV
  5. RIVOCERANIB [Suspect]
     Active Substance: RIVOCERANIB
     Indication: Hydronephrosis
     Route: 048
  6. RIVOCERANIB [Suspect]
     Active Substance: RIVOCERANIB
     Indication: Gastric cancer stage IV
  7. PACLITAXEL [Suspect]
     Active Substance: PACLITAXEL
     Indication: Hydronephrosis
     Route: 065
  8. PACLITAXEL [Suspect]
     Active Substance: PACLITAXEL
     Indication: Gastric cancer stage IV
  9. FLUOROURACIL [Suspect]
     Active Substance: FLUOROURACIL
     Indication: Gastric cancer stage IV
     Route: 065

REACTIONS (6)
  - Myelosuppression [Unknown]
  - Gastrointestinal haemorrhage [Unknown]
  - Bacterial infection [Unknown]
  - Fungal infection [Unknown]
  - Urinary incontinence [Unknown]
  - Metastases to bladder [Unknown]
